FAERS Safety Report 15578755 (Version 1)
Quarter: 2018Q4

REPORT INFORMATION
  Report Type: Spontaneous
  Country: US (occurrence: US)
  Receive Date: 20181029
  Receipt Date: 20181029
  Transmission Date: 20190205
  Serious: No
  Sender: FDA-Public Use
  Company Number: None

PATIENT
  Age: 30 Year
  Sex: Male

DRUGS (1)
  1. DAPTOMYCIN 500 MG FRESENIUS KABI USA [Suspect]
     Active Substance: DAPTOMYCIN
     Indication: CELLULITIS
     Dosage: ?          OTHER FREQUENCY:Q 24 HR;?
     Route: 042
     Dates: start: 20181015

REACTIONS (2)
  - Blood creatine phosphokinase increased [None]
  - Therapy cessation [None]

NARRATIVE: CASE EVENT DATE: 20181024
